FAERS Safety Report 19795649 (Version 1)
Quarter: 2021Q3

REPORT INFORMATION
  Report Type: Spontaneous
  Country: US (occurrence: US)
  Receive Date: 20210904
  Receipt Date: 20210904
  Transmission Date: 20211014
  Serious: Yes (Death, Other)
  Sender: FDA-Public Use
  Company Number: None

PATIENT
  Age: 73 Year
  Sex: Female
  Weight: 113 kg

DRUGS (1)
  1. TOCILIZUMAB. [Suspect]
     Active Substance: TOCILIZUMAB
     Indication: COVID-19
     Dates: start: 20210827, end: 20210827

REACTIONS (10)
  - Multiple organ dysfunction syndrome [None]
  - Pathogen resistance [None]
  - Hepatotoxicity [None]
  - Acute kidney injury [None]
  - Urosepsis [None]
  - Septic shock [None]
  - Respiratory failure [None]
  - Escherichia sepsis [None]
  - Atrial fibrillation [None]
  - Ischaemic hepatitis [None]

NARRATIVE: CASE EVENT DATE: 20210901
